FAERS Safety Report 13476901 (Version 1)
Quarter: 2017Q2

REPORT INFORMATION
  Report Type: Spontaneous
  Country: US (occurrence: US)
  Receive Date: 20170425
  Receipt Date: 20170425
  Transmission Date: 20170830
  Serious: Yes (Other)
  Sender: FDA-Public Use
  Company Number: US-ROCHE-1924043

PATIENT
  Age: 61 Year
  Sex: Female

DRUGS (3)
  1. RITUXAN [Suspect]
     Active Substance: RITUXIMAB
     Route: 042
     Dates: start: 201506
  2. RITUXAN [Suspect]
     Active Substance: RITUXIMAB
     Indication: GRANULOMATOSIS WITH POLYANGIITIS
     Dosage: WEEKLY FOR 4 WEEKS UNKNOWN GAP IN TIME BETWEEN TREATMENT.
     Route: 042
     Dates: start: 201210
  3. RITUXAN [Suspect]
     Active Substance: RITUXIMAB
     Dosage: WEEKLY FOR 4 WEEKS- UNKNOWN GAP IN TIME BETWEEN TREATMENT.ONGOING: NO
     Route: 042
     Dates: start: 201412

REACTIONS (1)
  - Haemorrhage [Unknown]
